FAERS Safety Report 4491977-7 (Version None)
Quarter: 2004Q4

REPORT INFORMATION
  Report Type: 
  Country: None (occurrence: None)
  Receive Date: 20041029
  Receipt Date: 20041029
  Transmission Date: 20050328
  Serious: Yes (Other)
  Sender: FDA-Public Use
  Company Number: None

PATIENT
  Age: 70 Year
  Sex: Female
  Weight: 67.1324 kg

DRUGS (12)
  1. ESCITALOPRAM   10 MG   FOREST [Suspect]
     Indication: DEPRESSION
     Dosage: 10 MG   ORAL
     Route: 048
     Dates: start: 20040822, end: 20040823
  2. DEXAMETHASONE [Concomitant]
  3. LORAZEPAM [Concomitant]
  4. CALCIUM CARBONATE [Concomitant]
  5. TAMSULOSIN [Concomitant]
  6. PANTOPRAZOLE [Concomitant]
  7. VITAMIN E [Concomitant]
  8. CELECOXIB [Concomitant]
  9. RAMIPRIL [Concomitant]
  10. FLUCONAZOLE [Concomitant]
  11. REGULAR INSULIN [Concomitant]
  12. TRAZODONE HCL [Concomitant]

REACTIONS (1)
  - BLOOD SODIUM DECREASED [None]
